FAERS Safety Report 18512804 (Version 1)
Quarter: 2020Q4

REPORT INFORMATION
  Report Type: Spontaneous
  Country: CN (occurrence: CN)
  Receive Date: 20201117
  Receipt Date: 20201117
  Transmission Date: 20210114
  Serious: Yes (Hospitalization, Other)
  Sender: FDA-Public Use
  Company Number: CN-TAKEDA-2020TUS049396

PATIENT

DRUGS (1)
  1. HUMAN ALBUMIN [Suspect]
     Active Substance: ALBUMIN HUMAN
     Indication: HYPOPROTEINAEMIA
     Dosage: 10 GRAM, QD
     Route: 042
     Dates: start: 20201026, end: 20201026

REACTIONS (4)
  - Pyrexia [Recovering/Resolving]
  - Back pain [Recovering/Resolving]
  - Infusion related reaction [Unknown]
  - Heart rate irregular [Recovered/Resolved]

NARRATIVE: CASE EVENT DATE: 20201026
